FAERS Safety Report 6595935-8 (Version None)
Quarter: 2010Q1

REPORT INFORMATION
  Report Type: 
  Country: None (occurrence: None)
  Receive Date: 20100223
  Receipt Date: 20100211
  Transmission Date: 20100710
  Serious: Yes (Disabling)
  Sender: FDA-Public Use
  Company Number: GB-ELI_LILLY_AND_COMPANY-GB201002003001

PATIENT
  Age: 30 Year
  Sex: Female
  Weight: 75 kg

DRUGS (5)
  1. DULOXETINE HYDROCHLORIDE [Suspect]
     Dosage: 90 MG, UNK
     Route: 048
     Dates: end: 20100123
  2. DULOXETINE HYDROCHLORIDE [Suspect]
     Dosage: 30 MG, UNK
     Route: 048
     Dates: end: 20100131
  3. LEVOTHYROXINE SODIUM [Concomitant]
     Dosage: UNK, UNKNOWN
  4. PRIADEL [Concomitant]
     Dosage: UNK, UNKNOWN
  5. NORTRIPTYLINE HCL [Concomitant]
     Dosage: UNK, UNKNOWN
     Dates: start: 20100201

REACTIONS (9)
  - ACTIVITIES OF DAILY LIVING IMPAIRED [None]
  - ANXIETY [None]
  - DRUG WITHDRAWAL SYNDROME [None]
  - FEELING ABNORMAL [None]
  - FEELING OF BODY TEMPERATURE CHANGE [None]
  - ILLUSION [None]
  - MOOD ALTERED [None]
  - MUSCLE SPASMS [None]
  - TREMOR [None]
